FAERS Safety Report 12492949 (Version 2)
Quarter: 2016Q2

REPORT INFORMATION
  Report Type: Report from Study
  Country: US (occurrence: US)
  Receive Date: 20160623
  Receipt Date: 20160628
  Transmission Date: 20160815
  Serious: Yes (Death)
  Sender: FDA-Public Use
  Company Number: US-ACTELION-A-NJ2016-137848

PATIENT
  Age: 23 Year
  Sex: Male

DRUGS (7)
  1. ZAROXOLYN [Concomitant]
     Active Substance: METOLAZONE
  2. OPSUMIT [Suspect]
     Active Substance: MACITENTAN
     Indication: PULMONARY ARTERIAL HYPERTENSION
     Dosage: 10 MG, QD
     Route: 048
     Dates: start: 20150917
  3. FLOVENT [Concomitant]
     Active Substance: FLUTICASONE PROPIONATE
  4. ATIVAN [Concomitant]
     Active Substance: LORAZEPAM
  5. ZOLOFT [Concomitant]
     Active Substance: SERTRALINE HYDROCHLORIDE
  6. SINGULAIR [Concomitant]
     Active Substance: MONTELUKAST SODIUM
  7. DEMADEX [Concomitant]
     Active Substance: TORSEMIDE

REACTIONS (5)
  - Disease progression [Fatal]
  - Dyspnoea [Fatal]
  - Seizure anoxic [Fatal]
  - Cyanosis [Fatal]
  - Cardiac arrest [Fatal]

NARRATIVE: CASE EVENT DATE: 20160523
